FAERS Safety Report 24282297 (Version 1)
Quarter: 2024Q3

REPORT INFORMATION
  Report Type: Spontaneous
  Country: RU (occurrence: RU)
  Receive Date: 20240904
  Receipt Date: 20240904
  Transmission Date: 20241016
  Serious: Yes (Other)
  Sender: BIOVITRUM
  Company Number: RU-AstraZeneca-2024-283737

PATIENT

DRUGS (1)
  1. SYNAGIS [Suspect]
     Active Substance: PALIVIZUMAB
     Indication: Product used for unknown indication
     Route: 030

REACTIONS (3)
  - Measles [Unknown]
  - Pneumonia [Unknown]
  - Immunodeficiency [Unknown]
